FAERS Safety Report 4320574-9 (Version None)
Quarter: 2004Q1

REPORT INFORMATION
  Report Type: 
  Country: None (occurrence: None)
  Receive Date: 20040319
  Receipt Date: 20040319
  Transmission Date: 20041129
  Serious: Yes (Hospitalization)
  Sender: FDA-Public Use
  Company Number: None

PATIENT
  Age: 65 Year
  Sex: Male
  Weight: 67.1324 kg

DRUGS (2)
  1. WARFARIN SODIUM [Suspect]
     Indication: MITRAL VALVE REPLACEMENT
     Dosage: 5MG QD
  2. ASPIRIN [Suspect]

REACTIONS (2)
  - GASTROINTESTINAL HAEMORRHAGE [None]
  - HAEMATOCRIT DECREASED [None]
